FAERS Safety Report 10337825 (Version 1)
Quarter: 2014Q3

REPORT INFORMATION
  Report Type: Spontaneous
  Country: US (occurrence: None)
  Receive Date: 20140722
  Receipt Date: 20140722
  Transmission Date: 20150326
  Serious: Yes (Hospitalization)
  Sender: FDA-Public Use
  Company Number: None

PATIENT
  Age: 63 Year
  Sex: Male
  Weight: 95 kg

DRUGS (2)
  1. CISPLATIN. [Suspect]
     Active Substance: CISPLATIN
  2. ETOPOSIDE (VP-16) [Suspect]
     Active Substance: ETOPOSIDE

REACTIONS (6)
  - Respiratory failure [None]
  - Pneumonia staphylococcal [None]
  - Cough [None]
  - Opportunistic infection [None]
  - Dyspnoea [None]
  - Radiation pneumonitis [None]

NARRATIVE: CASE EVENT DATE: 20140616
